FAERS Safety Report 21969938 (Version 6)
Quarter: 2025Q4

REPORT INFORMATION
  Report Type: Report from Study
  Country: BR (occurrence: BR)
  Receive Date: 20230208
  Receipt Date: 20251018
  Transmission Date: 20260117
  Serious: Yes (Other)
  Sender: CELLTRION
  Company Number: BR-CELLTRION INC.-2023BR002647

PATIENT

DRUGS (7)
  1. INFLIXIMAB-DYYB [Suspect]
     Active Substance: INFLIXIMAB-DYYB
     Indication: Colitis ulcerative
     Dosage: 3 AMPOULES EVERY 4 WEEKS (EVERY MONTH)
     Route: 042
     Dates: start: 20221025
  2. INFLIXIMAB-DYYB [Suspect]
     Active Substance: INFLIXIMAB-DYYB
     Dosage: 3 AMPOULES EVERY 2 MONTHS
     Route: 042
  3. INFLIXIMAB-DYYB [Suspect]
     Active Substance: INFLIXIMAB-DYYB
     Dosage: 3 AMPOULES EVERY 1 MONTH
     Route: 042
  4. INFLIXIMAB-DYYB [Suspect]
     Active Substance: INFLIXIMAB-DYYB
     Dosage: 3 VIALS OF REMSIMA PER MONTH (LAST INFUSION)
     Dates: start: 20250722
  5. MELATONIN [Concomitant]
     Active Substance: MELATONIN
     Indication: Insomnia
     Dosage: 2 MG, 1 PILL A DAY (START DATE: 1 YEAR AGO)
     Route: 048
  6. MELATONIN [Concomitant]
     Active Substance: MELATONIN
     Dosage: CONTINUOUS MEDICATION, 1 DOSE SOME NIGHTS (START DATE: 1 YEAR AGO)
     Route: 065
  7. MESALAMINE [Concomitant]
     Active Substance: MESALAMINE
     Indication: Product used for unknown indication
     Route: 065

REACTIONS (19)
  - Colitis ulcerative [Recovering/Resolving]
  - Haematochezia [Unknown]
  - Abdominal pain upper [Unknown]
  - Diarrhoea [Unknown]
  - Infusion related reaction [Recovered/Resolved]
  - Urinary tract infection [Recovering/Resolving]
  - Hypertension [Recovered/Resolved]
  - Pain [Recovering/Resolving]
  - COVID-19 [Unknown]
  - Weight increased [Recovering/Resolving]
  - Lung disorder [Unknown]
  - Arthralgia [Recovered/Resolved]
  - Headache [Recovering/Resolving]
  - Sinusitis [Recovered/Resolved]
  - Product availability issue [Unknown]
  - Therapy interrupted [Unknown]
  - Drug ineffective [Recovering/Resolving]
  - Intentional dose omission [Recovering/Resolving]
  - Intentional product use issue [Unknown]

NARRATIVE: CASE EVENT DATE: 20240716
